FAERS Safety Report 4759177-0 (Version None)
Quarter: 2005Q3

REPORT INFORMATION
  Report Type: 
  Country: None (occurrence: None)
  Receive Date: 20050831
  Receipt Date: 20050812
  Transmission Date: 20060218
  Serious: Yes (Other)
  Sender: FDA-Public Use
  Company Number: FR_050806953

PATIENT
  Age: 59 Year
  Sex: Male

DRUGS (4)
  1. ALIMTA [Suspect]
     Indication: NON-SMALL CELL LUNG CANCER
     Dates: start: 20050801
  2. ASCORBIC ACID W/FOLIC ACID/IRON/VITAMIN B12 [Concomitant]
  3. FOLIC ACID [Concomitant]
  4. STEROIDS [Concomitant]

REACTIONS (1)
  - URTICARIA GENERALISED [None]
